FAERS Safety Report 6996159-2 (Version None)
Quarter: 2010Q3

REPORT INFORMATION
  Report Type: 
  Country: None (occurrence: None)
  Receive Date: 20100918
  Receipt Date: 20090106
  Transmission Date: 20110219
  Serious: No
  Sender: FDA-Public Use
  Company Number: US-WYE-H07609509

PATIENT
  Sex: Male

DRUGS (2)
  1. EFFEXOR XR [Suspect]
     Indication: DEPRESSION
     Route: 048
     Dates: start: 20081231
  2. EFFEXOR XR [Suspect]
     Indication: ANXIETY

REACTIONS (2)
  - EJACULATION FAILURE [None]
  - EPIDIDYMITIS [None]
